FAERS Safety Report 14257271 (Version 2)
Quarter: 2017Q4

REPORT INFORMATION
  Report Type: Spontaneous
  Country: FR (occurrence: FR)
  Receive Date: 20171206
  Receipt Date: 20171226
  Transmission Date: 20180321
  Serious: Yes (Hospitalization)
  Sender: FDA-Public Use
  Company Number: FR-MERCK KGAA-2036859

PATIENT
  Age: 74 Year
  Sex: Male
  Weight: 80.5 kg

DRUGS (23)
  1. RAMIPRIL. [Suspect]
     Active Substance: RAMIPRIL
     Route: 048
     Dates: start: 201708
  2. HUMALOG(HUMALOG MIX) [Concomitant]
  3. KARDEGIC [Concomitant]
     Active Substance: ASPIRIN DL-LYSINE
  4. EUCREAS [Concomitant]
     Active Substance: METFORMIN HYDROCHLORIDE\VILDAGLIPTIN
  5. BILASTINE [Concomitant]
     Active Substance: BILASTINE
     Dates: end: 20170803
  6. NOVOTHYROX [Suspect]
     Active Substance: LEVOTHYROXINE SODIUM
     Indication: HYPOTHYROIDISM
     Route: 048
     Dates: start: 20170808
  7. ATENOLOL. [Suspect]
     Active Substance: ATENOLOL
     Dates: start: 201708
  8. PROCORALAN [Suspect]
     Active Substance: IVABRADINE
     Dates: start: 20170808
  9. SPIRONOLACTONE. [Concomitant]
     Active Substance: SPIRONOLACTONE
     Dates: start: 201708
  10. TARDYFERON [Concomitant]
     Active Substance: FERROUS SULFATE
     Dates: end: 20170803
  11. PREGABALINE [Suspect]
     Active Substance: PREGABALIN
     Route: 048
  12. SYMBICORT [Concomitant]
     Active Substance: BUDESONIDE\FORMOTEROL FUMARATE DIHYDRATE
  13. SPIRIVA [Concomitant]
     Active Substance: TIOTROPIUM BROMIDE MONOHYDRATE
  14. TAMSULOSINE [Concomitant]
     Active Substance: TAMSULOSIN HYDROCHLORIDE
  15. VITAMIN B12 [Concomitant]
     Active Substance: CYANOCOBALAMIN
     Route: 048
  16. PREGABALINE [Suspect]
     Active Substance: PREGABALIN
     Route: 048
     Dates: start: 201708
  17. ROSUVASTATIN. [Concomitant]
     Active Substance: ROSUVASTATIN
  18. METOPROLOL. [Concomitant]
     Active Substance: METOPROLOL
     Dates: end: 20170803
  19. ACETYLLEUCINE [Concomitant]
     Active Substance: ACETYLLEUCINE
     Dates: end: 20170803
  20. PYRIDOSTIGMINE [Concomitant]
     Active Substance: PYRIDOSTIGMINE
     Dates: end: 20170803
  21. FUROSEMIDE. [Suspect]
     Active Substance: FUROSEMIDE
     Route: 048
     Dates: start: 20170808
  22. BROMAZEPAM [Suspect]
     Active Substance: BROMAZEPAM
     Route: 048
     Dates: start: 20170808
  23. RAMIPRIL. [Suspect]
     Active Substance: RAMIPRIL
     Route: 048

REACTIONS (1)
  - Lichenoid keratosis [Recovered/Resolved]

NARRATIVE: CASE EVENT DATE: 201708
